FAERS Safety Report 20821050 (Version 1)
Quarter: 2022Q2

REPORT INFORMATION
  Report Type: Spontaneous
  Country: US (occurrence: US)
  Receive Date: 20220512
  Receipt Date: 20220512
  Transmission Date: 20220720
  Serious: No
  Sender: FDA-Public Use
  Company Number: US-PFIZER INC-202101588058

PATIENT
  Age: 64 Year
  Sex: Male
  Weight: 63.492 kg

DRUGS (2)
  1. RAPAMUNE [Suspect]
     Active Substance: SIROLIMUS
     Indication: Immunosuppression
     Dosage: 2 MG, 1X/DAY
     Route: 048
     Dates: start: 202005
  2. RAPAMUNE [Suspect]
     Active Substance: SIROLIMUS
     Indication: Liver transplant

REACTIONS (2)
  - Dysphagia [Not Recovered/Not Resolved]
  - Off label use [Unknown]

NARRATIVE: CASE EVENT DATE: 20200501
